FAERS Safety Report 24848506 (Version 1)
Quarter: 2025Q1

REPORT INFORMATION
  Report Type: Spontaneous
  Country: JP (occurrence: JP)
  Receive Date: 20250116
  Receipt Date: 20250116
  Transmission Date: 20250408
  Serious: Yes (Hospitalization)
  Sender: ROCHE
  Company Number: JP-CHUGAI-2024022151

PATIENT
  Age: 26 Year
  Sex: Female
  Weight: 47 kg

DRUGS (5)
  1. ENSPRYNG [Suspect]
     Active Substance: SATRALIZUMAB-MWGE
     Indication: Neuromyelitis optica spectrum disorder
     Dosage: 120 MILLIGRAM, ONCE/2WEEKS
     Route: 050
     Dates: start: 20240513, end: 20240603
  2. ENSPRYNG [Suspect]
     Active Substance: SATRALIZUMAB-MWGE
     Dosage: 120 MILLIGRAM, ONCE/MONTH
     Route: 050
     Dates: start: 20240603
  3. ESOMEPRAZOLE MAGNESIUM [Concomitant]
     Active Substance: ESOMEPRAZOLE MAGNESIUM
     Indication: Product used for unknown indication
     Route: 065
     Dates: start: 20230623
  4. LEVETIRACETAM [Concomitant]
     Active Substance: LEVETIRACETAM
     Indication: Product used for unknown indication
     Route: 065
     Dates: start: 20231101
  5. PROGRAF [Concomitant]
     Active Substance: TACROLIMUS
     Indication: Product used for unknown indication
     Route: 065
     Dates: start: 20240105

REACTIONS (1)
  - Neuromyelitis optica spectrum disorder [Recovering/Resolving]

NARRATIVE: CASE EVENT DATE: 20240607
